FAERS Safety Report 9900006 (Version 3)
Quarter: 2014Q1

REPORT INFORMATION
  Report Type: Report from Study
  Country: US (occurrence: US)
  Receive Date: 20140214
  Receipt Date: 20140227
  Transmission Date: 20141002
  Serious: Yes (Other)
  Sender: FDA-Public Use
  Company Number: US-ACTELION-A-US2013-81523

PATIENT
  Age: 60 Year
  Sex: Female

DRUGS (5)
  1. TRACLEER [Suspect]
     Indication: PULMONARY HYPERTENSION
     Dosage: UNK
     Route: 048
     Dates: start: 2013
  2. TRACLEER [Suspect]
     Dosage: UNK
     Route: 048
  3. TYVASO [Suspect]
  4. ADCIRCA [Concomitant]
  5. COUMADIN [Concomitant]

REACTIONS (31)
  - Pulmonary thrombosis [Unknown]
  - Hot flush [Recovered/Resolved]
  - Dyspnoea [Unknown]
  - Asthenia [Recovering/Resolving]
  - Presyncope [Recovering/Resolving]
  - Dizziness [Unknown]
  - Back pain [Unknown]
  - Swelling [Unknown]
  - Fatigue [Unknown]
  - Cough [Unknown]
  - Loss of consciousness [Unknown]
  - Syncope [Recovering/Resolving]
  - Diarrhoea [Recovered/Resolved]
  - Flushing [Recovering/Resolving]
  - Chest discomfort [Unknown]
  - Chest pain [Unknown]
  - Headache [Unknown]
  - Muscular weakness [Unknown]
  - Decreased appetite [Unknown]
  - Weight decreased [Unknown]
  - Feeling abnormal [Unknown]
  - Emotional disorder [Unknown]
  - Communication disorder [Unknown]
  - Incoherent [Unknown]
  - Rash [Unknown]
  - Dizziness exertional [Unknown]
  - Dyspnoea exertional [Unknown]
  - Migraine [Unknown]
  - Movement disorder [Unknown]
  - Limb discomfort [Unknown]
  - Back disorder [Unknown]
